FAERS Safety Report 9156406 (Version 2)
Quarter: 2013Q1

REPORT INFORMATION
  Report Type: Spontaneous
  Country: US (occurrence: US)
  Receive Date: 20130312
  Receipt Date: 20130313
  Transmission Date: 20140127
  Serious: Yes (Other)
  Sender: FDA-Public Use
  Company Number: US-PFIZER INC-2013078629

PATIENT
  Age: 10 Year
  Sex: Female

DRUGS (1)
  1. ADVIL PM [Suspect]
     Indication: SLEEP DISORDER
     Dosage: 2 DF (TWO TABLETS), 1X/DAY AT THE BED TIME
     Dates: start: 2005

REACTIONS (2)
  - Off label use [Unknown]
  - Drug dependence [Unknown]
